FAERS Safety Report 7966452-5 (Version None)
Quarter: 2011Q4

REPORT INFORMATION
  Report Type: 
  Country: None (occurrence: None)
  Receive Date: 20111208
  Receipt Date: 20111130
  Transmission Date: 20120403
  Serious: Yes (Hospitalization, Other)
  Sender: FDA-Public Use
  Company Number: US-ASTRAZENECA-2010SE23990

PATIENT
  Age: 71 Year
  Sex: Female

DRUGS (1)
  1. CRESTOR [Suspect]
     Route: 048

REACTIONS (8)
  - NEOPLASM MALIGNANT [None]
  - DRUG DOSE OMISSION [None]
  - BREAST CANCER [None]
  - RHEUMATOID ARTHRITIS [None]
  - MULTIPLE MYELOMA [None]
  - FIBROMYALGIA [None]
  - BLOOD CHOLESTEROL INCREASED [None]
  - HYPERTENSION [None]
